FAERS Safety Report 9869165 (Version 2)
Quarter: 2014Q1

REPORT INFORMATION
  Report Type: Spontaneous
  Country: JP (occurrence: JP)
  Receive Date: 20140205
  Receipt Date: 20140325
  Transmission Date: 20141002
  Serious: Yes (Hospitalization)
  Sender: FDA-Public Use
  Company Number: JP-009507513-1402JPN001581

PATIENT
  Age: 72 Year
  Sex: Male
  Weight: 35 kg

DRUGS (6)
  1. JANUVIA TABLETS 50MG [Suspect]
     Indication: TYPE 2 DIABETES MELLITUS
     Dosage: 50 MG, QD, ADMINISTERS VIA GASTRIC FISTULA
     Route: 050
     Dates: start: 20140121, end: 20140122
  2. GLUFAST [Suspect]
     Indication: TYPE 2 DIABETES MELLITUS
     Dosage: 30 MG, TID, ADMINISTERS VIA GASTRIC FISTULA
     Route: 050
     Dates: start: 20131210, end: 20140127
  3. BASEN OD [Suspect]
     Indication: TYPE 2 DIABETES MELLITUS
     Dosage: 30 MG, TID, ADMINISTERS VIA GASTRIC FISTULA
     Route: 050
     Dates: start: 20131210, end: 20140127
  4. MUCODYNE DS [Concomitant]
     Dosage: DAILY DOSAGE UNKNOWN
     Route: 050
  5. PANTOSIN [Concomitant]
     Dosage: DAILY DOSE UNKNOWN
     Route: 050
  6. MAGNESIUM OXIDE [Concomitant]
     Dosage: DAILY DOSAGE UNKNOWN
     Route: 050

REACTIONS (1)
  - Drug-induced liver injury [Unknown]
